FAERS Safety Report 7460180-0 (Version None)
Quarter: 2011Q2

REPORT INFORMATION
  Report Type: 
  Country: None (occurrence: None)
  Receive Date: 20110505
  Receipt Date: 20110429
  Transmission Date: 20111010
  Serious: Yes (Other)
  Sender: FDA-Public Use
  Company Number: US-AMGEN-USASP2011022488

PATIENT
  Age: 73 Year
  Sex: Female

DRUGS (1)
  1. ARANESP [Suspect]
     Dates: start: 20100901, end: 20101201

REACTIONS (2)
  - THROAT TIGHTNESS [None]
  - DYSPNOEA [None]
